FAERS Safety Report 4364963-5 (Version None)
Quarter: 2004Q2

REPORT INFORMATION
  Report Type: 
  Country: None (occurrence: None)
  Receive Date: 20040521
  Receipt Date: 20040429
  Transmission Date: 20050107
  Serious: Yes (Death, Hospitalization)
  Sender: FDA-Public Use
  Company Number: AU_040507673

PATIENT
  Age: 88 Year
  Sex: Female

DRUGS (4)
  1. ZYPREXA [Suspect]
     Indication: DEMENTIA
     Dosage: 5 MG
     Route: 048
     Dates: start: 20000125
  2. ZOLOFT [Concomitant]
  3. PREDNISOLONE [Concomitant]
  4. LOSEC (OMEPRAZOLE) [Concomitant]

REACTIONS (5)
  - FACIAL SPASM [None]
  - MARKEDLY REDUCED DIETARY INTAKE [None]
  - MUSCLE RIGIDITY [None]
  - RASH [None]
  - TARDIVE DYSKINESIA [None]
